FAERS Safety Report 9224374 (Version 1)
Quarter: 2013Q1

REPORT INFORMATION
  Report Type: Spontaneous
  Country: US (occurrence: None)
  Receive Date: 20120917
  Receipt Date: 20120917
  Transmission Date: 20140127
  Serious: Yes (Other)
  Sender: FDA-Public Use
  Company Number: 2012SP020624

PATIENT
  Age: 30 Year
  Sex: Female
  Weight: 71.67 kg

DRUGS (4)
  1. IMPLANON [Suspect]
     Indication: CONTRACEPTION
     Dosage: SBDE
     Route: 050
     Dates: start: 201010
  2. SPRINTEC [Concomitant]
  3. ORTHOCYCLEN [Concomitant]
  4. VITAMIN NOS [Concomitant]

REACTIONS (2)
  - Infertility [None]
  - Implant site fibrosis [None]
